FAERS Safety Report 20985318 (Version 2)
Quarter: 2022Q2

REPORT INFORMATION
  Report Type: Spontaneous
  Country: GR (occurrence: GR)
  Receive Date: 20220621
  Receipt Date: 20220627
  Transmission Date: 20220721
  Serious: Yes (Other)
  Sender: FDA-Public Use
  Company Number: ALC2022GR002844

PATIENT

DRUGS (13)
  1. ATROPINE [Suspect]
     Active Substance: ATROPINE
     Indication: Keratitis fungal
     Dosage: UNK, BID
     Route: 065
  2. VORICONAZOLE [Interacting]
     Active Substance: VORICONAZOLE
     Indication: Keratitis fungal
     Dosage: UNK, PER HOUR
     Route: 065
  3. VORICONAZOLE [Interacting]
     Active Substance: VORICONAZOLE
     Dosage: UNK, FIVE TIMES A DAY
     Route: 065
  4. VORICONAZOLE [Suspect]
     Active Substance: VORICONAZOLE
     Indication: Keratitis fungal
     Dosage: 200 MG, 2X/DAY
     Route: 042
  5. MOXIFLOXACIN\TOBRAMYCIN [Suspect]
     Active Substance: MOXIFLOXACIN\TOBRAMYCIN
     Indication: Keratitis fungal
     Dosage: UNK, EVERY HOUR
     Route: 065
  6. AMIKACIN [Suspect]
     Active Substance: AMIKACIN
     Indication: Keratitis fungal
     Dosage: UNK, QID
     Route: 065
  7. MOXIFLOXACIN [Suspect]
     Active Substance: MOXIFLOXACIN
     Indication: Keratitis fungal
     Dosage: 400 MG, 1X/DAY
     Route: 042
  8. FLUCONAZOLE [Suspect]
     Active Substance: FLUCONAZOLE
     Indication: Keratitis fungal
     Dosage: 100 MG, 2X/DAY
     Route: 048
  9. VANCOMYCIN [Suspect]
     Active Substance: VANCOMYCIN
     Indication: Keratitis fungal
     Dosage: UNK, QID
     Route: 065
  10. CYCLOPENTOLATE [Concomitant]
     Active Substance: CYCLOPENTOLATE
     Indication: Product used for unknown indication
     Dosage: UNK, 3X/DAY
     Route: 065
  11. CHLORAMPHENICOL;DEXAMETHASONE [Concomitant]
     Indication: Product used for unknown indication
     Dosage: UNK, FIVE TIMES A DAY
     Route: 065
  12. METHYLPREDNISOLONE [Concomitant]
     Active Substance: METHYLPREDNISOLONE
     Indication: Product used for unknown indication
     Dosage: 32 MG, DAILY
     Route: 048
  13. METHYLPREDNISOLONE [Concomitant]
     Active Substance: METHYLPREDNISOLONE
     Dosage: 16 MG, DAILY
     Route: 065

REACTIONS (2)
  - Off label use [Unknown]
  - Drug ineffective for unapproved indication [Unknown]
